FAERS Safety Report 4651008-2 (Version None)
Quarter: 2005Q2

REPORT INFORMATION
  Report Type: 
  Country: None (occurrence: None)
  Receive Date: 20050503
  Receipt Date: 20050422
  Transmission Date: 20051028
  Serious: Yes (Hospitalization, Other)
  Sender: FDA-Public Use
  Company Number: US-MERCK-0504USA04330

PATIENT
  Sex: Female
  Weight: 50 kg

DRUGS (9)
  1. VIOXX [Suspect]
     Indication: PAIN
     Route: 048
     Dates: start: 20011007, end: 20030802
  2. VIOXX [Suspect]
     Route: 048
     Dates: start: 20041222
  3. VIOXX [Suspect]
     Route: 048
  4. OXYCONTIN [Concomitant]
     Indication: PAIN
     Route: 048
     Dates: start: 20011001, end: 20020203
  5. HYZAAR [Concomitant]
     Indication: HYPERTENSION
     Route: 048
     Dates: start: 20011201, end: 20020105
  6. IBUPROFEN [Concomitant]
     Indication: PAIN
     Route: 048
     Dates: start: 20011001, end: 20020203
  7. DURAGESIC-100 [Concomitant]
     Indication: PAIN
     Route: 061
     Dates: start: 20010301, end: 20011201
  8. ATIVAN [Concomitant]
     Indication: ANXIETY
     Route: 048
     Dates: start: 20010101, end: 20021203
  9. ATIVAN [Concomitant]
     Indication: INSOMNIA
     Route: 048
     Dates: start: 20010101, end: 20021203

REACTIONS (14)
  - AMNESIA [None]
  - APHASIA [None]
  - ARRHYTHMIA [None]
  - BLINDNESS UNILATERAL [None]
  - CARDIAC FAILURE [None]
  - CARDIO-RESPIRATORY ARREST [None]
  - COMA [None]
  - DEMENTIA [None]
  - HEMIPLEGIA [None]
  - HYPERTENSION [None]
  - OVERDOSE [None]
  - PALPITATIONS [None]
  - RENAL FAILURE ACUTE [None]
  - RENAL FAILURE CHRONIC [None]
